FAERS Safety Report 8264368-0 (Version None)
Quarter: 2012Q2

REPORT INFORMATION
  Report Type: 
  Country: None (occurrence: None)
  Receive Date: 20120403
  Receipt Date: 20120319
  Transmission Date: 20120825
  Serious: Yes (Other)
  Sender: FDA-Public Use
  Company Number: USA/USA/12/0023602

PATIENT
  Age: 24 Year
  Sex: Male
  Weight: 63.5036 kg

DRUGS (5)
  1. EFFEXOR [Concomitant]
  2. VITAMIN D [Concomitant]
  3. LOVAZA [Concomitant]
  4. OLANZAPINE [Suspect]
     Indication: PSYCHOTIC DISORDER
     Dosage: 20 MG, 1 IN 1 D, ORAL
     Route: 048
     Dates: start: 20120222, end: 20120229
  5. REMERON [Concomitant]

REACTIONS (6)
  - HALLUCINATION, AUDITORY [None]
  - INCREASED APPETITE [None]
  - WEIGHT INCREASED [None]
  - SUICIDAL IDEATION [None]
  - DRUG INEFFECTIVE [None]
  - MAJOR DEPRESSION [None]
